FAERS Safety Report 9719473 (Version 3)
Quarter: 2016Q1

REPORT INFORMATION
  Report Type: Spontaneous
  Country: JP (occurrence: JP)
  Receive Date: 20131128
  Receipt Date: 20160328
  Transmission Date: 20160526
  Serious: Yes (Other)
  Sender: FDA-Public Use
  Company Number: JP-AMGEN-JPNSP2013083367

PATIENT
  Age: 76 Year
  Sex: Male

DRUGS (4)
  1. RANMARK [Suspect]
     Active Substance: DENOSUMAB
     Indication: METASTASES TO BONE
     Dosage: 120 MG, UNK
     Route: 058
  2. CRAVIT [Suspect]
     Active Substance: LEVOFLOXACIN
     Indication: OSTEONECROSIS OF JAW
     Dosage: 500 MG, QD
     Route: 048
     Dates: start: 20130803
  3. CRAVIT [Suspect]
     Active Substance: LEVOFLOXACIN
     Indication: PAIN
  4. RANMARK [Suspect]
     Active Substance: DENOSUMAB
     Indication: PROSTATE CANCER

REACTIONS (2)
  - Osteonecrosis of jaw [Recovering/Resolving]
  - Decreased appetite [Recovered/Resolved]

NARRATIVE: CASE EVENT DATE: 20130803
